FAERS Safety Report 5816485-X (Version None)
Quarter: 2008Q3

REPORT INFORMATION
  Report Type: 
  Country: None (occurrence: None)
  Receive Date: 20080721
  Receipt Date: 20080710
  Transmission Date: 20090109
  Serious: Yes (Hospitalization)
  Sender: FDA-Public Use
  Company Number: AU-MERCK-0711AUS00032

PATIENT
  Age: 23 Year
  Sex: Male

DRUGS (7)
  1. NOROXIN [Suspect]
     Indication: GASTRIC INFECTION
     Route: 048
     Dates: start: 20071001, end: 20071105
  2. NOROXIN [Suspect]
     Indication: DIARRHOEA
     Route: 048
     Dates: start: 20071001, end: 20071105
  3. CLOZARIL [Suspect]
     Indication: SCHIZOPHRENIA
     Route: 048
     Dates: start: 20071011, end: 20071031
  4. FLAGYL [Suspect]
     Indication: GASTRIC INFECTION
     Route: 065
     Dates: start: 20071001, end: 20071105
  5. FLAGYL [Suspect]
     Indication: DIARRHOEA
     Route: 065
     Dates: start: 20071001, end: 20071105
  6. CLARITHROMYCIN [Concomitant]
     Route: 065
  7. CEFTRIAXONE SODIUM [Concomitant]
     Route: 042

REACTIONS (7)
  - ABDOMINAL PAIN [None]
  - BLOOD AMYLASE INCREASED [None]
  - DIARRHOEA [None]
  - GASTROENTERITIS [None]
  - LIPASE INCREASED [None]
  - PANCREATITIS ACUTE [None]
  - PYREXIA [None]
